FAERS Safety Report 17499127 (Version 2)
Quarter: 2020Q1

REPORT INFORMATION
  Report Type: Spontaneous
  Country: US (occurrence: US)
  Receive Date: 20200305
  Receipt Date: 20200323
  Transmission Date: 20200409
  Serious: No
  Sender: FDA-Public Use
  Company Number: US-AMGEN-USASP2020035827

PATIENT
  Age: 72 Year
  Sex: Female
  Weight: 77.6 kg

DRUGS (2)
  1. MODAFINIL. [Concomitant]
     Active Substance: MODAFINIL
  2. REPATHA [Suspect]
     Active Substance: EVOLOCUMAB
     Indication: HYPERCHOLESTEROLAEMIA
     Dosage: 140 MILLIGRAM, Q2WK
     Route: 065
     Dates: start: 2016

REACTIONS (2)
  - Blood cholesterol increased [Unknown]
  - Low density lipoprotein increased [Unknown]
